FAERS Safety Report 6422106-8 (Version None)
Quarter: 2009Q4

REPORT INFORMATION
  Report Type: 
  Country: None (occurrence: None)
  Receive Date: 20091029
  Receipt Date: 20091029
  Transmission Date: 20100525
  Serious: Yes (Hospitalization)
  Sender: FDA-Public Use
  Company Number: None

PATIENT
  Sex: Female
  Weight: 78.0187 kg

DRUGS (1)
  1. TEMODAR [Suspect]
     Indication: BRAIN NEOPLASM
     Dosage: 280MG DAILY X 5 DAYS PO
     Route: 048
     Dates: start: 20091001

REACTIONS (4)
  - ANAPHYLACTIC SHOCK [None]
  - DIARRHOEA [None]
  - HEMIPARESIS [None]
  - PYREXIA [None]
